FAERS Safety Report 13818374 (Version 1)
Quarter: 2017Q3

REPORT INFORMATION
  Report Type: Spontaneous
  Country: US (occurrence: US)
  Receive Date: 20170731
  Receipt Date: 20170731
  Transmission Date: 20171127
  Serious: Yes (Disabling)
  Sender: FDA-Public Use
  Company Number: US-ROCHE-610210

PATIENT
  Age: 82 Year
  Sex: Female
  Weight: 49.9 kg

DRUGS (3)
  1. FUROSEMIDE. [Concomitant]
     Active Substance: FUROSEMIDE
     Dosage: DOSING FREQUENCY: QD, START DATE: BEFORE 2006
     Route: 048
  2. BONIVA [Suspect]
     Active Substance: IBANDRONATE SODIUM
     Indication: OSTEOPOROSIS
     Dosage: DOSE: 3 MG/3 ML?FORM: PREFILLED SYRINGE
     Route: 042
     Dates: start: 20060824, end: 20071204
  3. DIGITEK [Concomitant]
     Active Substance: DIGOXIN
     Dosage: DOSING FREQUENCY: QD, START DATE: BEFORE 2006
     Route: 048

REACTIONS (1)
  - Osteonecrosis of jaw [Not Recovered/Not Resolved]

NARRATIVE: CASE EVENT DATE: 20080226
